FAERS Safety Report 5943401-2 (Version None)
Quarter: 2008Q4

REPORT INFORMATION
  Report Type: 
  Country: None (occurrence: None)
  Receive Date: 20081106
  Receipt Date: 20081027
  Transmission Date: 20090506
  Serious: Yes (Hospitalization)
  Sender: FDA-Public Use
  Company Number: GB-ABBOTT-08P-167-0468941-00

PATIENT
  Sex: Female
  Weight: 90 kg

DRUGS (18)
  1. HUMIRA [Suspect]
     Indication: PSORIASIS
     Route: 058
     Dates: start: 20080530, end: 20080801
  2. DAIVOBET (BLINDED) [Suspect]
     Indication: PSORIASIS
     Route: 061
     Dates: start: 20080530, end: 20080801
  3. LORATADINE [Concomitant]
     Indication: SEASONAL ALLERGY
     Dates: start: 20080606
  4. CROTAMITON [Concomitant]
     Indication: PRURITUS
     Dates: start: 20080707
  5. BALNEUM PLUS [Concomitant]
     Indication: RASH
     Dates: start: 20080710
  6. CHLORPHENIRAMINE MALEATE [Concomitant]
     Indication: RASH
     Dates: start: 20080711
  7. EUGYNON [Concomitant]
     Indication: CONTRACEPTION
     Dates: start: 20000101
  8. SERETIDE [Concomitant]
     Indication: ASTHMA
     Route: 055
     Dates: start: 19850101
  9. TRAMADOL HCL [Concomitant]
     Indication: PAIN
     Dates: start: 20080818, end: 20080821
  10. TRAMADOL HCL [Concomitant]
     Dates: start: 20080821, end: 20080831
  11. OS-CAL [Concomitant]
     Indication: VITAMIN D
     Dates: start: 20080811
  12. OMEPRAZOLE [Concomitant]
     Indication: GASTRITIS EROSIVE
     Dates: start: 20080809
  13. PEDNISALONE EC [Concomitant]
     Indication: ANTIINFLAMMATORY THERAPY
     Dates: start: 20080818
  14. DOVOBET [Concomitant]
     Indication: PSORIASIS
     Dates: start: 20080807, end: 20080829
  15. DERMAVATE SCALP APPLICATION [Concomitant]
     Indication: PSORIASIS
     Dates: start: 20080807
  16. PREGABALIN [Concomitant]
     Indication: NEURALGIA
     Dates: start: 20080812, end: 20080818
  17. PREGABALIN [Concomitant]
     Indication: PAIN IN EXTREMITY
     Dates: start: 20080818, end: 20080829
  18. PREGABALIN [Concomitant]
     Dates: start: 20080829

REACTIONS (3)
  - JOINT SWELLING [None]
  - OEDEMA PERIPHERAL [None]
  - PAIN IN EXTREMITY [None]
